FAERS Safety Report 9382921 (Version 2)
Quarter: 2013Q3

REPORT INFORMATION
  Report Type: Report from Study
  Country: DE (occurrence: DE)
  Receive Date: 20130703
  Receipt Date: 20130802
  Transmission Date: 20140515
  Serious: Yes (Hospitalization)
  Sender: FDA-Public Use
  Company Number: DE-ABBOTT-13P-062-1111217-00

PATIENT
  Sex: Female

DRUGS (3)
  1. HUMIRA [Suspect]
     Indication: CROHN^S DISEASE
     Route: 058
     Dates: start: 20130122, end: 20130515
  2. HUMIRA [Suspect]
     Dates: start: 20130711
  3. DIMENHYDRINAT (VOMEX) [Concomitant]
     Indication: PRODUCT USED FOR UNKNOWN INDICATION

REACTIONS (3)
  - Unevaluable event [Unknown]
  - Pneumonia [Recovering/Resolving]
  - Nausea [Unknown]
